FAERS Safety Report 9113523 (Version 3)
Quarter: 2013Q1

REPORT INFORMATION
  Report Type: Spontaneous
  Country: US (occurrence: US)
  Receive Date: 20130131
  Receipt Date: 20130320
  Transmission Date: 20140127
  Serious: No
  Sender: FDA-Public Use
  Company Number: US-PFIZER INC-2013030731

PATIENT
  Age: 49 Year
  Sex: Male
  Weight: 122 kg

DRUGS (20)
  1. VIAGRA [Suspect]
     Indication: ERECTILE DYSFUNCTION
     Dosage: 100 MG, AS NEEDED
     Route: 048
     Dates: start: 20120820
  2. VIAGRA [Suspect]
     Dosage: 100 MG, UNK
     Dates: start: 2012
  3. LIPITOR [Concomitant]
     Indication: BLOOD CHOLESTEROL INCREASED
     Dosage: 40 MG, DAILY
  4. NEURONTIN [Concomitant]
     Dosage: 300 MG, 3X/DAY
     Route: 048
  5. SINGULAIR [Concomitant]
     Dosage: 10 MG, DAILY
     Route: 048
  6. CIPRO [Concomitant]
     Dosage: 500 MG, 2X/DAY
     Route: 048
  7. DITROPAN XL [Concomitant]
     Dosage: 10 MG, DAILY
     Route: 048
  8. DITROPAN XL [Concomitant]
     Dosage: 15 MG, DAILY
     Route: 048
  9. NICODERM CQ [Concomitant]
     Dosage: 21 MG, EVERY 24 HOURS
     Route: 062
  10. PRILOSEC [Concomitant]
     Dosage: 40 MG, DAILY
     Route: 048
  11. TOPROL XL [Concomitant]
     Dosage: 12.5 MG, DAILY
     Route: 048
  12. PROAIR HFA [Concomitant]
     Indication: WHEEZING
     Dosage: UNK, 1-2 PUFFS BY INHALATION EVERY 4 HOURS PRN
     Route: 055
  13. PROAIR HFA [Concomitant]
     Dosage: UNK, ONE - TWO PUFFS BY MOUTH EVERY 6 HOURS AS NEEDED
     Route: 055
  14. ADVAIR DISKUS [Concomitant]
     Dosage: UNK, 1 PUFF BY INHALATION EVERY 12 HOURS. TWO PUFFS DAILY. ONCE IN THE AM AND ONCE IN THE PM.
     Route: 055
  15. NITROSTAT [Concomitant]
     Indication: CHEST PAIN
     Dosage: 0.4 MG, AS NEEDED (EVERY 5 MIN)
     Route: 060
  16. ASPIRIN [Concomitant]
     Dosage: 81 MG, DAILY
     Route: 048
  17. LEVOTHYROXINE SODIUM [Concomitant]
     Dosage: 100 UG, 1X/DAY
     Route: 048
  18. SEROQUEL [Concomitant]
     Indication: DEPRESSION
     Dosage: 200 MG, 1X/DAY
     Route: 048
  19. WELLBUTRIN [Concomitant]
     Dosage: 200 MG, 2X/DAY
     Route: 048
  20. ZYBAN [Concomitant]
     Dosage: 200 MG, 2X/DAY
     Route: 048

REACTIONS (1)
  - Drug ineffective [Unknown]
